FAERS Safety Report 24687463 (Version 2)
Quarter: 2024Q4

REPORT INFORMATION
  Report Type: Spontaneous
  Country: PL (occurrence: PL)
  Receive Date: 20241202
  Receipt Date: 20241210
  Transmission Date: 20250114
  Serious: Yes (Hospitalization, Other)
  Sender: MYLAN
  Company Number: None

PATIENT
  Age: 83 Year
  Sex: Female
  Weight: 91 kg

DRUGS (85)
  1. OMEPRAZOLE [Suspect]
     Active Substance: OMEPRAZOLE
     Indication: Product used for unknown indication
     Dosage: 20 MILLIGRAM, QD (1-1-0)
     Route: 065
  2. CANDESARTAN [Suspect]
     Active Substance: CANDESARTAN
     Indication: Atrial fibrillation
     Dosage: 2 MILLIGRAM, QD
     Route: 048
  3. CANDESARTAN [Suspect]
     Active Substance: CANDESARTAN
     Dosage: UNK
     Route: 065
  4. ZOLPIDEM [Suspect]
     Active Substance: ZOLPIDEM TARTRATE
     Indication: Depression
     Dosage: 0-0-1
     Route: 065
  5. ALPRAZOLAM [Suspect]
     Active Substance: ALPRAZOLAM
     Indication: Depression
     Dosage: UNK, PRN (AS NECASSARY, USUALLY 2 X /24 H)
     Route: 065
  6. ATORVASTATIN [Suspect]
     Active Substance: ATORVASTATIN
     Indication: Product used for unknown indication
     Dosage: UNK (0-0-1)
     Route: 065
  7. GLICLAZIDE [Suspect]
     Active Substance: GLICLAZIDE
     Indication: Product used for unknown indication
     Dosage: 1-1-1
     Route: 065
  8. DAPAGLIFLOZIN [Suspect]
     Active Substance: DAPAGLIFLOZIN
     Indication: Ill-defined disorder
     Dosage: 10 MILLIGRAM, QD
     Route: 065
  9. LANSOPRAZOLE [Suspect]
     Active Substance: LANSOPRAZOLE
     Indication: Product used for unknown indication
     Dosage: 10 MILLIGRAM, QD
     Route: 065
     Dates: start: 20180207
  10. LANSOPRAZOLE [Suspect]
     Active Substance: LANSOPRAZOLE
     Dosage: 5 MILLIGRAM, QD
     Route: 065
     Dates: start: 20240207
  11. LANSOPRAZOLE [Suspect]
     Active Substance: LANSOPRAZOLE
     Dosage: 5 MILLIGRAM, QD
     Route: 065
     Dates: start: 20240218
  12. LANSOPRAZOLE [Suspect]
     Active Substance: LANSOPRAZOLE
     Dosage: 10 MILLIGRAM, QD
     Route: 065
     Dates: start: 20240218
  13. LANSOPRAZOLE [Suspect]
     Active Substance: LANSOPRAZOLE
     Dosage: 5 MILLIGRAM, QD
     Route: 065
     Dates: start: 20220207
  14. LANSOPRAZOLE [Suspect]
     Active Substance: LANSOPRAZOLE
     Dosage: 30 MILLIGRAM, QD
     Route: 065
  15. BETAHISTINE [Suspect]
     Active Substance: BETAHISTINE
     Indication: Product used for unknown indication
     Dosage: UNK (0-1-0)
     Route: 065
  16. CITALOPRAM [Suspect]
     Active Substance: CITALOPRAM
     Indication: Product used for unknown indication
     Dosage: 1-0-0
     Route: 065
  17. HYDROXYZINE HYDROCHLORIDE [Suspect]
     Active Substance: HYDROXYZINE HYDROCHLORIDE
     Indication: Product used for unknown indication
     Dosage: PRN (AS NECASSARY, USUALLY 2 X /24 H)
     Route: 065
  18. ISOSORBIDE MONONITRATE [Suspect]
     Active Substance: ISOSORBIDE MONONITRATE
     Indication: Coronary artery disease
     Dosage: PRN (AS NECESSARY, USUALLY 1-2 X / 24)
     Route: 065
  19. ISOSORBIDE MONONITRATE [Suspect]
     Active Substance: ISOSORBIDE MONONITRATE
     Dosage: 50 MILLIGRAM, QD
     Route: 065
  20. ISOSORBIDE MONONITRATE [Suspect]
     Active Substance: ISOSORBIDE MONONITRATE
     Dosage: 50 MILLIGRAM, QD
     Route: 048
  21. METOPROLOL [Suspect]
     Active Substance: METOPROLOL
     Indication: Product used for unknown indication
     Dosage: UNK (1-0-1)
     Route: 065
  22. ALLOPURINOL [Suspect]
     Active Substance: ALLOPURINOL
     Indication: Product used for unknown indication
     Dosage: UNK (1-0-0)
     Route: 065
  23. RAMIPRIL [Suspect]
     Active Substance: RAMIPRIL
     Indication: Product used for unknown indication
     Dosage: UNK (1-0-0)
     Route: 065
  24. FUROSEMIDE [Suspect]
     Active Substance: FUROSEMIDE
     Indication: Product used for unknown indication
     Dosage: 3 DOSAGE FORM, QOD
     Route: 065
  25. SPIRONOLACTONE [Suspect]
     Active Substance: SPIRONOLACTONE
     Indication: Product used for unknown indication
     Dosage: UNK (0-1-0)
     Route: 065
  26. HYDROCHLOROTHIAZIDE [Suspect]
     Active Substance: HYDROCHLOROTHIAZIDE
     Indication: Cerebrovascular accident prophylaxis
     Dosage: 2 MILLIGRAM, QD (1-0-0)
     Route: 048
  27. HYDROCHLOROTHIAZIDE [Suspect]
     Active Substance: HYDROCHLOROTHIAZIDE
     Dosage: UNK
     Route: 048
  28. HYDROCHLOROTHIAZIDE [Suspect]
     Active Substance: HYDROCHLOROTHIAZIDE
     Dosage: 10 MILLIGRAM, QD
     Route: 048
  29. HYDROCHLOROTHIAZIDE [Suspect]
     Active Substance: HYDROCHLOROTHIAZIDE
     Dosage: 1 DOSAGE FORM, QD
     Route: 048
  30. DABIGATRAN [Suspect]
     Active Substance: DABIGATRAN
     Indication: Product used for unknown indication
     Dosage: UNK (1-0-1)
     Route: 065
  31. POTASSIUM CHLORIDE [Suspect]
     Active Substance: POTASSIUM CHLORIDE
     Dosage: 1 DOSAGE FORM, Q2D (1 TABLET (391 K +) EVERY 2 DAYS)
     Route: 065
  32. TRAMADOL [Suspect]
     Active Substance: TRAMADOL
     Indication: Product used for unknown indication
     Dosage: 2 DOSAGE FORM, PRN (AS NECESSARY 2 TABLETS)
     Route: 065
  33. ACETAMINOPHEN [Suspect]
     Active Substance: ACETAMINOPHEN
     Indication: Product used for unknown indication
     Dosage: UNK (0-0-1)
     Route: 065
  34. ALBUTEROL [Suspect]
     Active Substance: ALBUTEROL
     Indication: Product used for unknown indication
     Dosage: PRN (~AS NECESSARY)
     Route: 065
  35. METOCLOPRAMIDE [Suspect]
     Active Substance: METOCLOPRAMIDE
     Indication: Product used for unknown indication
     Dosage: 2 DOSAGE FORM, PRN (IN CASE OF CONSTIPATION FOR MANY MONTHS
     Route: 065
  36. LEVOTHYROXINE [Suspect]
     Active Substance: LEVOTHYROXINE
     Indication: Product used for unknown indication
     Dosage: 125 MICROGRAM, QD
     Route: 065
  37. LEVOTHYROXINE [Suspect]
     Active Substance: LEVOTHYROXINE
     Dosage: 50 MICROGRAM, QD
     Route: 048
  38. LEVOTHYROXINE [Suspect]
     Active Substance: LEVOTHYROXINE
     Dosage: 1 DOSAGE FORM, QD (URETHRAL)
     Route: 065
  39. LEVOTHYROXINE [Suspect]
     Active Substance: LEVOTHYROXINE
     Dosage: 5 MILLIGRAM, QD
     Route: 065
  40. LEVOTHYROXINE [Suspect]
     Active Substance: LEVOTHYROXINE
     Dosage: 12 MICROGRAM, QD
     Route: 048
  41. LEVOTHYROXINE [Suspect]
     Active Substance: LEVOTHYROXINE
     Dosage: 30 MILLIGRAM, QD
     Route: 065
  42. LEVOTHYROXINE [Suspect]
     Active Substance: LEVOTHYROXINE
     Dosage: 50 MICROGRAM, QD
     Route: 048
  43. LEVOTHYROXINE [Suspect]
     Active Substance: LEVOTHYROXINE
     Dosage: 3 MILLIGRAM, QD
     Route: 065
  44. LEVOTHYROXINE [Suspect]
     Active Substance: LEVOTHYROXINE
     Dosage: 10 MILLIGRAM, QD
     Route: 065
  45. LEVOTHYROXINE [Suspect]
     Active Substance: LEVOTHYROXINE
     Dosage: 5 GRAM, QD
     Route: 065
  46. LEVOTHYROXINE [Suspect]
     Active Substance: LEVOTHYROXINE
     Dosage: 50 MILLIGRAM, QD
     Route: 065
  47. ZOCOR [Suspect]
     Active Substance: SIMVASTATIN
     Indication: Product used for unknown indication
     Dosage: 40 MILLIGRAM, QD
     Route: 048
  48. BISOPROLOL [Suspect]
     Active Substance: BISOPROLOL
     Indication: Cerebrovascular accident prophylaxis
     Dosage: 5 MILLIGRAM, QD
     Route: 065
     Dates: start: 20180207
  49. BISOPROLOL [Suspect]
     Active Substance: BISOPROLOL
     Dosage: 10 MILLIGRAM, QD
     Route: 065
  50. BISOPROLOL [Suspect]
     Active Substance: BISOPROLOL
     Dosage: 10 MILLIGRAM, QD
     Route: 048
  51. CETIRIZINE [Suspect]
     Active Substance: CETIRIZINE HYDROCHLORIDE
     Indication: Product used for unknown indication
     Dosage: 10 MILLIGRAM, QD
     Route: 048
  52. CETIRIZINE [Suspect]
     Active Substance: CETIRIZINE HYDROCHLORIDE
     Dosage: 1 DOSAGE FORM, QD
     Route: 048
  53. CETIRIZINE [Suspect]
     Active Substance: CETIRIZINE HYDROCHLORIDE
     Dosage: 62.5 MICROGRAM, QD
     Route: 048
  54. CETIRIZINE [Suspect]
     Active Substance: CETIRIZINE HYDROCHLORIDE
     Dosage: 10 MILLIGRAM, QD
     Route: 065
  55. LINAGLIPTIN [Suspect]
     Active Substance: LINAGLIPTIN
     Indication: Product used for unknown indication
     Dosage: 5 MICROGRAM, QD
     Route: 065
  56. ELIQUIS [Suspect]
     Active Substance: APIXABAN
     Indication: Atrial fibrillation
     Dosage: 10 MILLIGRAM, QD
     Route: 065
     Dates: start: 20180207
  57. ELIQUIS [Suspect]
     Active Substance: APIXABAN
     Indication: Cerebrovascular accident prophylaxis
     Dosage: 5 MILLIGRAM, QD
     Route: 065
  58. ELIQUIS [Suspect]
     Active Substance: APIXABAN
     Dosage: 5 MILLIGRAM, QD
     Route: 048
  59. ELIQUIS [Suspect]
     Active Substance: APIXABAN
     Dosage: 10 MILLIGRAM, QD
     Route: 042
  60. ELIQUIS [Suspect]
     Active Substance: APIXABAN
     Dosage: 5 MILLIGRAM, QD
     Route: 042
  61. ELIQUIS [Suspect]
     Active Substance: APIXABAN
     Dosage: 5 MILLIGRAM, QD
     Route: 048
  62. ISOSORBIDE DINITRATE [Suspect]
     Active Substance: ISOSORBIDE DINITRATE
     Indication: Product used for unknown indication
     Dosage: 50 MILLIGRAM, QD
     Route: 048
  63. ISOSORBIDE DINITRATE [Suspect]
     Active Substance: ISOSORBIDE DINITRATE
     Dosage: UNK
     Route: 048
  64. ISOSORBIDE DINITRATE [Suspect]
     Active Substance: ISOSORBIDE DINITRATE
     Dosage: 50 MILLIGRAM, QD
     Route: 048
  65. ISOSORBIDE DINITRATE [Suspect]
     Active Substance: ISOSORBIDE DINITRATE
     Dosage: 2 DOSAGE FORM
     Route: 048
  66. ISOSORBIDE DINITRATE [Suspect]
     Active Substance: ISOSORBIDE DINITRATE
     Dosage: 50 MILLIGRAM
     Route: 048
  67. ISOSORBIDE DINITRATE [Suspect]
     Active Substance: ISOSORBIDE DINITRATE
     Dosage: 50 MILLIGRAM, QD
     Route: 048
  68. DIGOXIN [Suspect]
     Active Substance: DIGOXIN
     Indication: Cerebrovascular accident prophylaxis
     Dosage: 62.5 MICROGRAM, QD
     Route: 065
  69. DIGOXIN [Suspect]
     Active Substance: DIGOXIN
     Dosage: 63 DOSAGE FORM, QD
     Route: 065
  70. DIGOXIN [Suspect]
     Active Substance: DIGOXIN
     Dosage: 1 MICROGRAM, QD
     Route: 065
  71. DIGOXIN [Suspect]
     Active Substance: DIGOXIN
     Dosage: 4 MICROGRAM, QD
     Route: 065
  72. DIGOXIN [Suspect]
     Active Substance: DIGOXIN
     Dosage: 62.5 GRAM, QD
     Route: 065
  73. FELODIPINE [Suspect]
     Active Substance: FELODIPINE
     Indication: Hypertension
     Dosage: UNK
     Route: 065
  74. ESOMEPRAZOLE [Suspect]
     Active Substance: ESOMEPRAZOLE
     Indication: Reflux laryngitis
     Dosage: 40 MILLIGRAM, QD
     Route: 065
  75. NAPROXEN [Suspect]
     Active Substance: NAPROXEN
     Indication: Product used for unknown indication
     Dosage: UNK
     Route: 065
  76. ASTRAZENECA COVID-19 VACCINE [Suspect]
     Active Substance: AZD-1222
     Indication: COVID-19 immunisation
     Dosage: UNK
     Route: 065
     Dates: start: 20210208
  77. ASTRAZENECA COVID-19 VACCINE [Suspect]
     Active Substance: AZD-1222
     Dosage: DOSE 1
     Route: 065
     Dates: start: 20210312
  78. ASTRAZENECA COVID-19 VACCINE [Suspect]
     Active Substance: AZD-1222
     Dosage: DOSE 1
     Route: 065
     Dates: start: 20210507
  79. ASTRAZENECA COVID-19 VACCINE [Suspect]
     Active Substance: AZD-1222
     Dosage: DOSE 2
     Route: 065
     Dates: start: 20210517
  80. ASTRAZENECA COVID-19 VACCINE [Suspect]
     Active Substance: AZD-1222
     Dosage: DOSE 2
     Route: 065
     Dates: start: 20210605
  81. ASTRAZENECA COVID-19 VACCINE [Suspect]
     Active Substance: AZD-1222
     Dosage: DOSE 2
     Route: 065
     Dates: start: 20210622
  82. ASTRAZENECA COVID-19 VACCINE [Suspect]
     Active Substance: AZD-1222
     Dosage: DOSE 2
     Route: 065
     Dates: start: 20210625
  83. ASTRAZENECA COVID-19 VACCINE [Suspect]
     Active Substance: AZD-1222
     Dosage: DOSE 2
     Route: 065
     Dates: start: 20210703
  84. ASTRAZENECA COVID-19 VACCINE [Suspect]
     Active Substance: AZD-1222
     Dosage: DOSE 3
     Route: 065
     Dates: start: 20211221
  85. ASTRAZENECA COVID-19 VACCINE [Suspect]
     Active Substance: AZD-1222
     Dosage: DOSE 4
     Route: 065
     Dates: start: 20211021

REACTIONS (67)
  - Cognitive disorder [Recovered/Resolved]
  - Depression [Unknown]
  - Mobility decreased [Unknown]
  - Diabetes mellitus inadequate control [Unknown]
  - Hypotension [Unknown]
  - Osteoporosis [Unknown]
  - Hyponatraemia [Unknown]
  - Malaise [Unknown]
  - Hallucination [Unknown]
  - Pericarditis [Not Recovered/Not Resolved]
  - Cardiospasm [Not Recovered/Not Resolved]
  - Atrial tachycardia [Unknown]
  - Muscular weakness [Unknown]
  - Feeling abnormal [Unknown]
  - Anosmia [Recovering/Resolving]
  - Lip swelling [Recovering/Resolving]
  - Dry skin [Not Recovered/Not Resolved]
  - Pain [Unknown]
  - Eye pruritus [Unknown]
  - Facial pain [Unknown]
  - Amnesia [Recovering/Resolving]
  - Diarrhoea [Unknown]
  - Dyspnoea [Unknown]
  - Chest pain [Unknown]
  - Palpitations [Unknown]
  - Tachycardia [Unknown]
  - Abdominal discomfort [Unknown]
  - Pyrexia [Unknown]
  - Angioedema [Unknown]
  - Fall [Unknown]
  - Pruritus [Recovering/Resolving]
  - Subarachnoid haemorrhage [Recovered/Resolved]
  - Ventricular tachycardia [Not Recovered/Not Resolved]
  - Headache [Not Recovered/Not Resolved]
  - Vomiting [Recovered/Resolved]
  - Disturbance in attention [Recovered/Resolved]
  - Dizziness [Unknown]
  - Palmoplantar keratoderma [Not Recovered/Not Resolved]
  - Tinnitus [Not Recovered/Not Resolved]
  - Migraine [Not Recovered/Not Resolved]
  - Tension headache [Not Recovered/Not Resolved]
  - Peripheral swelling [Unknown]
  - Pain of skin [Unknown]
  - Arthralgia [Unknown]
  - Alopecia [Recovered/Resolved with Sequelae]
  - Memory impairment [Recovering/Resolving]
  - Sleep terror [Unknown]
  - Pruritus genital [Unknown]
  - Visual impairment [Not Recovered/Not Resolved]
  - Blindness [Not Recovered/Not Resolved]
  - Diplopia [Not Recovered/Not Resolved]
  - Vasculitis [Not Recovered/Not Resolved]
  - Transient ischaemic attack [Recovered/Resolved]
  - Nausea [Unknown]
  - Back pain [Unknown]
  - Heart rate increased [Unknown]
  - Muscle twitching [Unknown]
  - Abdominal pain upper [Unknown]
  - Dehydration [Unknown]
  - Hyperhidrosis [Unknown]
  - Rash papular [Unknown]
  - Anxiety [Unknown]
  - Insomnia [Unknown]
  - Carotid artery occlusion [Recovered/Resolved]
  - Myocardial infarction [Recovered/Resolved]
  - COVID-19 [Unknown]
  - Off label use [Unknown]

NARRATIVE: CASE EVENT DATE: 20210315
